FAERS Safety Report 11370815 (Version 3)
Quarter: 2015Q4

REPORT INFORMATION
  Report Type: Spontaneous
  Country: US (occurrence: US)
  Receive Date: 20150812
  Receipt Date: 20151217
  Transmission Date: 20160304
  Serious: Yes (Hospitalization, Other)
  Sender: FDA-Public Use
  Company Number: US-GLAXOSMITHKLINE-US2015115050

PATIENT
  Sex: Female

DRUGS (1)
  1. FLOVENT [Suspect]
     Active Substance: FLUTICASONE PROPIONATE
     Indication: DYSPNOEA
     Dosage: UNK, BID
     Route: 065

REACTIONS (6)
  - Hospitalisation [Unknown]
  - Confusional state [Unknown]
  - Cerebrovascular accident [Unknown]
  - Rehabilitation therapy [Unknown]
  - Cerebrovascular accident [Recovering/Resolving]
  - Hallucination [Unknown]

NARRATIVE: CASE EVENT DATE: 2014
